FAERS Safety Report 5655070-X (Version None)
Quarter: 2008Q1

REPORT INFORMATION
  Report Type: 
  Country: None (occurrence: None)
  Receive Date: 20080307
  Receipt Date: 20071116
  Transmission Date: 20080703
  Serious: No
  Sender: FDA-Public Use
  Company Number: A0694969A

PATIENT
  Age: 42 Year
  Sex: Female

DRUGS (5)
  1. REQUIP [Suspect]
     Indication: RESTLESS LEGS SYNDROME
     Route: 048
     Dates: start: 20060101, end: 20060101
  2. INDERAL [Concomitant]
  3. KLONOPIN [Concomitant]
  4. WELLBUTRIN [Concomitant]
  5. SEROQUEL [Concomitant]

REACTIONS (2)
  - NAUSEA [None]
  - VOMITING [None]
